FAERS Safety Report 6424484-2 (Version None)
Quarter: 2009Q4

REPORT INFORMATION
  Report Type: 
  Country: None (occurrence: None)
  Receive Date: 20091103
  Receipt Date: 20091021
  Transmission Date: 20100525
  Serious: Yes (Hospitalization, Other)
  Sender: FDA-Public Use
  Company Number: US-ROCHE-642387

PATIENT
  Sex: Female

DRUGS (3)
  1. PEGASYS [Suspect]
     Indication: HEPATITIS C
     Dosage: FORM: PRE-FILLED SYRINGE
     Route: 065
     Dates: start: 20090626
  2. RIBAVIRIN [Suspect]
     Indication: HEPATITIS C
     Route: 065
     Dates: start: 20090626
  3. ADDERALL 10 [Concomitant]

REACTIONS (15)
  - ARTHRALGIA [None]
  - ARTHRITIS [None]
  - BLISTER [None]
  - ERYTHEMA [None]
  - LARYNGEAL MASS [None]
  - LIP BLISTER [None]
  - MYALGIA [None]
  - OROPHARYNGEAL PAIN [None]
  - PAIN OF SKIN [None]
  - PNEUMONIA ASPIRATION [None]
  - PYREXIA [None]
  - SCRATCH [None]
  - SKIN SWELLING [None]
  - VOMITING [None]
  - WEIGHT DECREASED [None]
